FAERS Safety Report 15374693 (Version 1)
Quarter: 2018Q3

REPORT INFORMATION
  Report Type: Spontaneous
  Country: US (occurrence: US)
  Receive Date: 20180906
  Receipt Date: 20180906
  Transmission Date: 20181010
  Serious: Yes (Disabling)
  Sender: FDA-Public Use
  Company Number: None

PATIENT
  Age: 83 Year
  Sex: Female
  Weight: 69.75 kg

DRUGS (13)
  1. VITAMIN B12 [Concomitant]
     Active Substance: CYANOCOBALAMIN
  2. FERROUS SULFATE. [Concomitant]
     Active Substance: FERROUS SULFATE
  3. LOSARTAN 100MG [Suspect]
     Active Substance: LOSARTAN
     Indication: HYPERTENSION
     Route: 048
     Dates: start: 20171204, end: 20180301
  4. BENADRYL [Concomitant]
     Active Substance: DIPHENHYDRAMINE HYDROCHLORIDE
  5. OMAPRAZOLE [Concomitant]
  6. B6 [Concomitant]
     Active Substance: PYRIDOXINE HYDROCHLORIDE
  7. MOBIC [Concomitant]
     Active Substance: MELOXICAM
  8. DEPAKOTE [Concomitant]
     Active Substance: DIVALPROEX SODIUM
  9. LISINIPRIL [Concomitant]
     Active Substance: LISINOPRIL
  10. SEROQUEL [Concomitant]
     Active Substance: QUETIAPINE FUMARATE
  11. NARDIL [Concomitant]
     Active Substance: PHENELZINE SULFATE
  12. ROPINIROL [Concomitant]
     Active Substance: ROPINIROLE
  13. ZINC. [Concomitant]
     Active Substance: ZINC

REACTIONS (1)
  - Burning mouth syndrome [None]

NARRATIVE: CASE EVENT DATE: 20180101
